FAERS Safety Report 25051495 (Version 3)
Quarter: 2025Q3

REPORT INFORMATION
  Report Type: Report from Study
  Country: US (occurrence: US)
  Receive Date: 20250307
  Receipt Date: 20250810
  Transmission Date: 20251021
  Serious: No
  Sender: KYOWA
  Company Number: US-KYOWAKIRIN-2025KK004178

PATIENT

DRUGS (6)
  1. BUROSUMAB [Suspect]
     Active Substance: BUROSUMAB
     Indication: Hereditary hypophosphataemic rickets
     Dosage: 60 MG (2 VIALS), 1X/4 WEEKS
     Route: 058
  2. BUROSUMAB [Suspect]
     Active Substance: BUROSUMAB
     Dosage: 60 MG, 1X/4 WEEKS
     Route: 058
  3. BUROSUMAB [Suspect]
     Active Substance: BUROSUMAB
     Dosage: 60 MG, 1X/4 WEEKS
     Route: 058
  4. BUROSUMAB [Suspect]
     Active Substance: BUROSUMAB
     Indication: Product used for unknown indication
     Dosage: 57.20 MG, 1X/4 WEEKS
     Route: 058
  5. CALCITRIOL [Concomitant]
     Active Substance: CALCITRIOL
     Indication: Product used for unknown indication
     Route: 065
  6. PHOSPHO TRIN [Concomitant]
     Indication: Product used for unknown indication
     Route: 065

REACTIONS (3)
  - Bone pain [Not Recovered/Not Resolved]
  - Diarrhoea [Recovered/Resolved]
  - Product use issue [Unknown]
